FAERS Safety Report 7324118-9 (Version None)
Quarter: 2011Q1

REPORT INFORMATION
  Report Type: 
  Country: None (occurrence: None)
  Receive Date: 20110201
  Receipt Date: 20100419
  Transmission Date: 20110831
  Serious: Yes (Other)
  Sender: FDA-Public Use
  Company Number: WAES 1004USA03211

PATIENT

DRUGS (1)
  1. PRIMAXIN [Suspect]
     Indication: ACINETOBACTER INFECTION
     Dosage: 1 GM/Q6H

REACTIONS (1)
  - CONVULSION [None]
